FAERS Safety Report 7359099-5 (Version None)
Quarter: 2011Q1

REPORT INFORMATION
  Report Type: 
  Country: None (occurrence: None)
  Receive Date: 20110307
  Receipt Date: 20090616
  Transmission Date: 20110831
  Serious: Yes (Disabling)
  Sender: FDA-Public Use
  Company Number: UK-2009-00197

PATIENT
  Age: 87 Year
  Sex: Female
  Weight: 60 kg

DRUGS (5)
  1. SIMVASTATIN [Suspect]
     Indication: MYOCARDIAL ISCHAEMIA
     Dosage: 10 MG (10 MG), ORAL
     Route: 048
  2. PARACETAMOL [Concomitant]
  3. OMEPRAZOLE [Concomitant]
  4. CARBOCISTEINE [Concomitant]
  5. CLOPIDOGREL [Concomitant]

REACTIONS (2)
  - NIGHTMARE [None]
  - POOR QUALITY SLEEP [None]
